FAERS Safety Report 24576970 (Version 1)
Quarter: 2024Q4

REPORT INFORMATION
  Report Type: Spontaneous
  Country: US (occurrence: US)
  Receive Date: 20241104
  Receipt Date: 20241104
  Transmission Date: 20250115
  Serious: Yes (Other)
  Sender: DR REDDYS
  Company Number: US-DRL-USA-SPO/USA/24/0016266

PATIENT
  Sex: Female

DRUGS (1)
  1. ESGIC [Suspect]
     Active Substance: ACETAMINOPHEN\BUTALBITAL\CAFFEINE
     Indication: Product used for unknown indication

REACTIONS (4)
  - Exposure during pregnancy [Unknown]
  - Syncope [Unknown]
  - Gestational diabetes [Unknown]
  - Premature delivery [Unknown]
